FAERS Safety Report 11830764 (Version 1)
Quarter: 2015Q4

REPORT INFORMATION
  Report Type: Report from Study
  Country: US (occurrence: US)
  Receive Date: 20151214
  Receipt Date: 20151214
  Transmission Date: 20160305
  Serious: Yes (Other)
  Sender: FDA-Public Use
  Company Number: US-BRISTOL-MYERS SQUIBB COMPANY-13675079

PATIENT
  Age: 19 Year
  Sex: Female

DRUGS (4)
  1. RETROVIR [Suspect]
     Active Substance: ZIDOVUDINE
     Indication: HIV INFECTION
     Dosage: 1875 MG, QD
     Route: 042
     Dates: start: 20060217, end: 20060218
  2. EFAVIRENZ [Suspect]
     Active Substance: EFAVIRENZ
     Indication: HIV INFECTION
     Dosage: 600 MG, QD
     Route: 048
     Dates: end: 20050727
  3. VIREAD [Suspect]
     Active Substance: TENOFOVIR DISOPROXIL FUMARATE
     Indication: HIV INFECTION
     Dosage: 300 MG, QD
     Route: 048
     Dates: end: 20050727
  4. EMTRIVA [Suspect]
     Active Substance: EMTRICITABINE
     Indication: HIV INFECTION
     Dosage: 200 MG, QD
     Route: 048
     Dates: end: 20050727

REACTIONS (4)
  - Pregnancy [Recovered/Resolved]
  - Live birth [Unknown]
  - Premature delivery [Unknown]
  - Pre-eclampsia [Unknown]

NARRATIVE: CASE EVENT DATE: 20060218
